FAERS Safety Report 5216984-8 (Version None)
Quarter: 2007Q1

REPORT INFORMATION
  Report Type: 
  Country: None (occurrence: None)
  Receive Date: 20070124
  Receipt Date: 20070112
  Transmission Date: 20070707
  Serious: Yes (Other)
  Sender: FDA-Public Use
  Company Number: PHHO2007MX01223

PATIENT
  Age: 13 Year
  Sex: Female

DRUGS (2)
  1. TRILEPTAL [Suspect]
     Indication: CONVULSION
     Dosage: 1/4 TABLET (300MG)/DAY
     Route: 048
     Dates: end: 20060501
  2. TRILEPTAL [Suspect]
     Dosage: 1.5 TABLETS (300MG)/DAY
     Route: 048
     Dates: start: 20050701

REACTIONS (5)
  - ANOREXIA [None]
  - CONDITION AGGRAVATED [None]
  - CONVULSION [None]
  - HYPERSOMNIA [None]
  - WEIGHT DECREASED [None]
